FAERS Safety Report 9549197 (Version 1)
Quarter: 2013Q3

REPORT INFORMATION
  Report Type: Spontaneous
  Country: US (occurrence: US)
  Receive Date: 20130924
  Receipt Date: 20130924
  Transmission Date: 20140515
  Serious: Yes (Other)
  Sender: FDA-Public Use
  Company Number: US-009507513-1309USA008162

PATIENT
  Sex: Male

DRUGS (1)
  1. MIRALAX [Suspect]
     Indication: BOWEL PREPARATION
     Dosage: 17 G, 5 TIMES PER DAY
     Route: 048
     Dates: start: 20130917

REACTIONS (3)
  - Lung neoplasm malignant [Unknown]
  - Off label use [Unknown]
  - Overdose [Unknown]
